FAERS Safety Report 6254683-4 (Version None)
Quarter: 2009Q3

REPORT INFORMATION
  Report Type: 
  Country: None (occurrence: None)
  Receive Date: 20090702
  Receipt Date: 20090629
  Transmission Date: 20100115
  Serious: Yes (Hospitalization, Other)
  Sender: FDA-Public Use
  Company Number: JP-AVENTIS-200910281JP

PATIENT
  Age: 76 Year
  Sex: Male
  Weight: 73 kg

DRUGS (10)
  1. LANTUS [Suspect]
     Indication: DIABETES MELLITUS
     Dosage: DOSE: 12 UNITS
     Route: 058
     Dates: start: 20081023, end: 20081228
  2. ALDACTONE [Concomitant]
     Route: 048
  3. OLMETEC [Concomitant]
     Indication: HYPERTENSION
     Route: 048
  4. ALOSITOL [Concomitant]
     Route: 048
  5. VASOLAN                            /00014302/ [Concomitant]
     Indication: ARRHYTHMIA
     Route: 048
  6. TAKEPRON [Concomitant]
     Indication: GASTRIC ULCER
     Route: 048
  7. WARFARIN [Concomitant]
     Indication: ATRIAL FIBRILLATION
     Route: 048
  8. ASPIRIN [Concomitant]
     Indication: ANGINA PECTORIS
     Route: 048
     Dates: start: 20081121
  9. LOCHOL                             /01224501/ [Concomitant]
     Indication: ANGINA PECTORIS
     Route: 048
     Dates: start: 20081121
  10. NOVORAPID [Concomitant]
     Indication: DIABETES MELLITUS
     Dosage: DOSE: 8 TO 34 UNITS
     Route: 058
     Dates: start: 20070704, end: 20090129

REACTIONS (3)
  - ANTI-INSULIN ANTIBODY POSITIVE [None]
  - HYPERGLYCAEMIA [None]
  - HYPOGLYCAEMIA [None]
